FAERS Safety Report 21642451 (Version 1)
Quarter: 2022Q4

REPORT INFORMATION
  Report Type: Spontaneous
  Country: US (occurrence: US)
  Receive Date: 20221125
  Receipt Date: 20221125
  Transmission Date: 20230113
  Serious: No
  Sender: FDA-Public Use
  Company Number: US-BAUSCH-BL-2022-025790

PATIENT
  Age: 72 Year
  Sex: Female

DRUGS (1)
  1. ATRALIN [Suspect]
     Active Substance: TRETINOIN
     Indication: Skin wrinkling
     Route: 061
     Dates: start: 2022, end: 202211

REACTIONS (5)
  - Application site dryness [Not Recovered/Not Resolved]
  - Application site exfoliation [Unknown]
  - Application site pruritus [Unknown]
  - Prescription drug used without a prescription [Unknown]
  - Product use in unapproved indication [Unknown]

NARRATIVE: CASE EVENT DATE: 20221101
